FAERS Safety Report 23382850 (Version 1)
Quarter: 2024Q1

REPORT INFORMATION
  Report Type: Spontaneous
  Country: FR (occurrence: FR)
  Receive Date: 20240109
  Receipt Date: 20240109
  Transmission Date: 20240410
  Serious: Yes (Other)
  Sender: FDA-Public Use
  Company Number: FR-ALCON LABORATORIES-ALC2024FR000440

PATIENT

DRUGS (2)
  1. ATROPINE [Suspect]
     Active Substance: ATROPINE\ATROPINE SULFATE
     Indication: Wrong drug
     Dosage: 7.5 ML, ONCE/SINGLE
     Dates: start: 20231016, end: 20231016
  2. HYALURONATE SODIUM [Suspect]
     Active Substance: HYALURONATE SODIUM
     Indication: Dry eye
     Dosage: UNK
     Route: 065

REACTIONS (3)
  - Wrong product administered [Unknown]
  - Vomiting [Recovered/Resolved]
  - Mydriasis [Recovered/Resolved]

NARRATIVE: CASE EVENT DATE: 20231016
